FAERS Safety Report 9572462 (Version 1)
Quarter: 2013Q4

REPORT INFORMATION
  Report Type: Spontaneous
  Country: SE (occurrence: SE)
  Receive Date: 20131001
  Receipt Date: 20131001
  Transmission Date: 20140711
  Serious: Yes (Hospitalization)
  Sender: FDA-Public Use
  Company Number: SE-PFIZER INC-2013274816

PATIENT
  Age: 85 Year
  Sex: Female

DRUGS (9)
  1. SALAZOPYRIN [Suspect]
     Dosage: UNK
     Dates: end: 201306
  2. PRIMPERAN [Concomitant]
  3. ALENAT [Concomitant]
     Dosage: UNK
  4. SERTRALINE [Concomitant]
  5. SCHERIPROCT N [Concomitant]
  6. FURIX [Concomitant]
  7. SPIRONOLACTONE [Concomitant]
  8. TROMBYL [Concomitant]
     Dosage: 75 MG, UNK
  9. PANTOLOC ^BYK MADAUS^ [Concomitant]
     Dosage: 40 MG, UNK

REACTIONS (6)
  - Decreased appetite [Recovered/Resolved]
  - Weight decreased [Recovered/Resolved]
  - Fatigue [Recovered/Resolved]
  - Anaemia [Recovered/Resolved]
  - Hypokalaemia [Recovered/Resolved]
  - Hyponatraemia [Recovered/Resolved]
